FAERS Safety Report 6900568-7 (Version None)
Quarter: 2010Q3

REPORT INFORMATION
  Report Type: 
  Country: None (occurrence: None)
  Receive Date: 20100803
  Receipt Date: 20100723
  Transmission Date: 20110219
  Serious: Yes (Other)
  Sender: FDA-Public Use
  Company Number: US-PFIZER INC-2010092899

PATIENT
  Sex: Male
  Weight: 81.633 kg

DRUGS (2)
  1. VIAGRA [Suspect]
     Indication: ERECTILE DYSFUNCTION
     Dosage: 25 MG, UNK
     Route: 048
     Dates: start: 20100701
  2. CIALIS [Suspect]
     Indication: ERECTILE DYSFUNCTION
     Dosage: UNK
     Route: 048

REACTIONS (3)
  - ABNORMAL DREAMS [None]
  - DRUG INEFFECTIVE [None]
  - VISUAL IMPAIRMENT [None]
